FAERS Safety Report 7780941-8 (Version None)
Quarter: 2011Q3

REPORT INFORMATION
  Report Type: 
  Country: None (occurrence: None)
  Receive Date: 20110927
  Receipt Date: 20110919
  Transmission Date: 20111222
  Serious: No
  Sender: FDA-Public Use
  Company Number: US-PFIZER INC-2011223957

PATIENT
  Sex: Female
  Weight: 63.492 kg

DRUGS (2)
  1. AMOXICILLIN [Suspect]
     Dosage: UNK
  2. IBUPROFEN [Suspect]
     Dosage: UNK

REACTIONS (1)
  - DRUG HYPERSENSITIVITY [None]
